FAERS Safety Report 4696285-7 (Version None)
Quarter: 2005Q2

REPORT INFORMATION
  Report Type: 
  Country: None (occurrence: None)
  Receive Date: 20050620
  Receipt Date: 20050607
  Transmission Date: 20051028
  Serious: Yes (Hospitalization, Other)
  Sender: FDA-Public Use
  Company Number: 2005085798

PATIENT
  Age: 64 Year
  Sex: Male
  Weight: 122.4712 kg

DRUGS (9)
  1. BEXTRA [Suspect]
     Indication: ARTHRITIS
     Dosage: 20 MG (20 MG, 1 IN 1 D), ORAL
     Route: 048
     Dates: start: 20040601
  2. PLAVIX [Concomitant]
  3. ENALAPRIL MALEATE [Concomitant]
  4. ACTOS [Concomitant]
  5. TRICOR [Concomitant]
  6. METFORMIN HCL [Concomitant]
  7. PRAVACHOL [Concomitant]
  8. AMARYL [Concomitant]
  9. ASPIRIN [Concomitant]

REACTIONS (4)
  - CARDIAC STRESS TEST ABNORMAL [None]
  - POST PROCEDURAL COMPLICATION [None]
  - SCAR [None]
  - SWELLING [None]
